FAERS Safety Report 5583103-8 (Version None)
Quarter: 2007Q4

REPORT INFORMATION
  Report Type: 
  Country: None (occurrence: None)
  Receive Date: 20071231
  Receipt Date: 20071213
  Transmission Date: 20080405
  Serious: Yes (Hospitalization, Other)
  Sender: FDA-Public Use
  Company Number: ENTC2007-0359

PATIENT
  Sex: Female

DRUGS (6)
  1. STALEVO 100 [Suspect]
     Indication: PARKINSON'S DISEASE
     Dosage: 150 MG ORAL, 150 MG BID ORAL, 150 MG QID ORAL,
     Route: 048
     Dates: start: 20071101, end: 20071101
  2. STALEVO 100 [Suspect]
     Indication: PARKINSON'S DISEASE
     Dosage: 150 MG ORAL, 150 MG BID ORAL, 150 MG QID ORAL,
     Route: 048
     Dates: start: 20070328
  3. STALEVO 100 [Suspect]
     Indication: PARKINSON'S DISEASE
     Dosage: 150 MG ORAL, 150 MG BID ORAL, 150 MG QID ORAL,
     Route: 048
     Dates: start: 20070901
  4. MIRAPEXIN [Concomitant]
  5. PROLOPA [Concomitant]
  6. REMERGON [Concomitant]

REACTIONS (6)
  - ANOREXIA [None]
  - BLOOD PRESSURE INCREASED [None]
  - EMOTIONAL DISORDER [None]
  - GENERAL PHYSICAL HEALTH DETERIORATION [None]
  - NAUSEA [None]
  - WEIGHT DECREASED [None]
